FAERS Safety Report 16168452 (Version 2)
Quarter: 2019Q2

REPORT INFORMATION
  Report Type: Spontaneous
  Country: FR (occurrence: FR)
  Receive Date: 20190408
  Receipt Date: 20190508
  Transmission Date: 20190711
  Serious: Yes (Hospitalization, Other)
  Sender: FDA-Public Use
  Company Number: FR-UCBSA-2019013880

PATIENT
  Age: 0 Year
  Sex: Female
  Weight: 3.04 kg

DRUGS (3)
  1. RIVOTRIL [Suspect]
     Active Substance: CLONAZEPAM
     Indication: EPILEPSY
     Dosage: 0.5/DAY (UNIT NOT REPORTED) IN EVENING
     Route: 064
     Dates: start: 20171001
  2. RIVOTRIL [Suspect]
     Active Substance: CLONAZEPAM
     Dosage: DOSE INCREASED WITH ADDITION OF 1/4 DF IN MORNING
     Route: 064
     Dates: start: 20180322, end: 2018
  3. KEPPRA [Suspect]
     Active Substance: LEVETIRACETAM
     Indication: EPILEPSY
     Dosage: 2G DAILY
     Route: 064
     Dates: start: 20171001

REACTIONS (6)
  - Apnoea [Recovered/Resolved]
  - Myoclonus [Unknown]
  - Bradycardia [Recovered/Resolved]
  - Oxygen saturation decreased [Recovered/Resolved]
  - Breech presentation [Unknown]
  - Maternal exposure before pregnancy [Unknown]

NARRATIVE: CASE EVENT DATE: 20171001
